FAERS Safety Report 24162399 (Version 1)
Quarter: 2024Q3

REPORT INFORMATION
  Report Type: Spontaneous
  Country: CN (occurrence: CN)
  Receive Date: 20240801
  Receipt Date: 20240801
  Transmission Date: 20241016
  Serious: Yes (Other)
  Sender: ROCHE
  Company Number: CN-ROCHE-10000043050

PATIENT
  Age: 56 Year
  Sex: Female
  Weight: 50 kg

DRUGS (4)
  1. BEVACIZUMAB [Suspect]
     Active Substance: BEVACIZUMAB
     Indication: Rectal adenocarcinoma
     Route: 042
     Dates: start: 20240718, end: 20240718
  2. OXALIPLATIN [Suspect]
     Active Substance: OXALIPLATIN
     Indication: Rectal adenocarcinoma
     Route: 042
     Dates: start: 20240718, end: 20240718
  3. FLUOROURACIL [Suspect]
     Active Substance: FLUOROURACIL
     Indication: Rectal adenocarcinoma
     Route: 050
     Dates: start: 20240718, end: 20240718
  4. FLUOROURACIL [Suspect]
     Active Substance: FLUOROURACIL
     Route: 050
     Dates: start: 20240718, end: 20240718

REACTIONS (2)
  - White blood cell count decreased [Recovering/Resolving]
  - Granulocyte count decreased [Recovering/Resolving]

NARRATIVE: CASE EVENT DATE: 20240722
